FAERS Safety Report 21310596 (Version 1)
Quarter: 2022Q3

REPORT INFORMATION
  Report Type: Other
  Country: US (occurrence: None)
  Receive Date: 20220909
  Receipt Date: 20220909
  Transmission Date: 20221027
  Serious: Yes (Other)
  Sender: FDA-Public Use
  Company Number: US-ROCHE-3175098

PATIENT
  Sex: Female

DRUGS (1)
  1. XELODA [Suspect]
     Active Substance: CAPECITABINE
     Indication: Neoplasm malignant
     Dosage: TAKE 4 TABLET(S) BY MOUTH TWICE A DAY ALTERNATING 7 DAYS ON AND THEN 7 DAYS OFF.
     Route: 048

REACTIONS (3)
  - Neoplasm [Unknown]
  - Fatigue [Unknown]
  - Nausea [Unknown]
